APPROVED DRUG PRODUCT: HALOTHANE
Active Ingredient: HALOTHANE
Strength: 99.99%
Dosage Form/Route: LIQUID;INHALATION
Application: A080810 | Product #001
Applicant: HALOCARBON LABORATORIES DIV HALOCARBON PRODUCTS CORP
Approved: Approved Prior to Jan 1, 1982 | RLD: No | RS: No | Type: DISCN